FAERS Safety Report 9485731 (Version 1)
Quarter: 2013Q3

REPORT INFORMATION
  Report Type: Spontaneous
  Country: US (occurrence: None)
  Receive Date: 20130827
  Receipt Date: 20130827
  Transmission Date: 20140515
  Serious: Yes (Other)
  Sender: FDA-Public Use
  Company Number: None

PATIENT
  Age: 47 Year
  Sex: Female
  Weight: 39.64 kg

DRUGS (1)
  1. CLIMARA PATCH [Suspect]
     Indication: OESTROGEN DEFICIENCY

REACTIONS (2)
  - Product adhesion issue [None]
  - Drug effect decreased [None]
